FAERS Safety Report 8207878-4 (Version None)
Quarter: 2012Q1

REPORT INFORMATION
  Report Type: 
  Country: None (occurrence: None)
  Receive Date: 20120314
  Receipt Date: 20111212
  Transmission Date: 20120608
  Serious: Yes (Other)
  Sender: FDA-Public Use
  Company Number: DE-PFIZER INC-2012064734

PATIENT
  Sex: Female

DRUGS (4)
  1. TORASEMIDE [Concomitant]
     Dosage: UNK
  2. DIBLOCIN PP [Suspect]
     Dosage: 4 MG, 3X/DAY
     Route: 048
     Dates: start: 20041101
  3. MOXONIDINE [Suspect]
     Dosage: UNK
     Route: 048
     Dates: start: 20041101
  4. VERAPAMIL [Concomitant]
     Dosage: UNK

REACTIONS (1)
  - EPISTAXIS [None]
